FAERS Safety Report 4609998-X (Version None)
Quarter: 2005Q1

REPORT INFORMATION
  Report Type: 
  Country: None (occurrence: None)
  Receive Date: 20050315
  Receipt Date: 20050304
  Transmission Date: 20050727
  Serious: Yes (Hospitalization)
  Sender: FDA-Public Use
  Company Number: HQWYE860204MAR05

PATIENT
  Age: 87 Year
  Sex: Female

DRUGS (4)
  1. PANTOZOL (PANTOPRAZOLE) [Suspect]
     Dosage: 40 MG SOME TIMES
  2. ENOXAPARIN SODIUM [Suspect]
  3. VOLTAREN [Suspect]
     Dosage: 2 DOSAGE FORM 1X PER 1 DAY
  4. XIMOVAN (ZOPICLONE,) [Suspect]

REACTIONS (1)
  - VASCULITIS [None]
